FAERS Safety Report 10231223 (Version 1)
Quarter: 2014Q2

REPORT INFORMATION
  Report Type: Spontaneous
  Country: CN (occurrence: CN)
  Receive Date: 20140611
  Receipt Date: 20140611
  Transmission Date: 20141212
  Serious: Yes (Hospitalization, Other)
  Sender: FDA-Public Use
  Company Number: CN-ELI_LILLY_AND_COMPANY-CN201406003782

PATIENT
  Age: 62 Year
  Sex: Female
  Weight: 57 kg

DRUGS (2)
  1. GEMCITABINE HYDROCHLORIDE [Suspect]
     Indication: OVARIAN CANCER
     Dosage: 1600 MG, CYCLICAL
     Route: 042
     Dates: start: 20130830, end: 20130906
  2. IRINOTECAN [Suspect]
     Indication: OVARIAN CANCER
     Dosage: 280 MG, CYCLICAL
     Route: 042
     Dates: start: 20130901, end: 20130901

REACTIONS (2)
  - Bone marrow failure [Recovering/Resolving]
  - Diarrhoea haemorrhagic [Recovered/Resolved]
